FAERS Safety Report 8560959-8 (Version None)
Quarter: 2012Q3

REPORT INFORMATION
  Report Type: 
  Country: None (occurrence: None)
  Receive Date: 20120802
  Receipt Date: 20120725
  Transmission Date: 20120928
  Serious: Yes (Hospitalization, Other)
  Sender: FDA-Public Use
  Company Number: US-ELI_LILLY_AND_COMPANY-US201101002984

PATIENT
  Sex: Male

DRUGS (12)
  1. FORTEO [Suspect]
     Dosage: 20 UG, QD
     Route: 065
  2. ZYPREXA [Concomitant]
  3. TRAZODONE HYDROCHLORIDE [Concomitant]
     Indication: SLEEP DISORDER
     Dosage: 150 MG, EACH EVENING
  4. FLUOXETINE HCL [Concomitant]
     Dosage: 20 MG, QD
  5. PREDNISONE [Concomitant]
     Indication: ANKYLOSING SPONDYLITIS
     Dosage: 10 MG, BID
  6. FORTEO [Suspect]
     Indication: OSTEOPOROSIS
     Dosage: 20 UG, QD
     Route: 065
     Dates: start: 20110101
  7. NEURONTIN [Concomitant]
  8. IBUPROFEN [Concomitant]
     Indication: PAIN
     Dosage: 200 MG, PRN
  9. FOLIC ACID [Concomitant]
     Dosage: 1 MG, QD
  10. SENNA LAXATIVE [Concomitant]
     Dosage: UNK, BID
  11. FORTEO [Suspect]
     Dosage: 20 UG, QD
     Route: 065
  12. DIAZEPAM [Concomitant]
     Dosage: 10 MG, BID

REACTIONS (13)
  - RIB FRACTURE [None]
  - MALAISE [None]
  - UPPER LIMB FRACTURE [None]
  - HOSPITALISATION [None]
  - DIZZINESS [None]
  - LOWER LIMB FRACTURE [None]
  - HEART RATE INCREASED [None]
  - DRUG DOSE OMISSION [None]
  - SPINAL FRACTURE [None]
  - PELVIC FRACTURE [None]
  - PATELLA FRACTURE [None]
  - WRIST FRACTURE [None]
  - DRUG INEFFECTIVE [None]
